FAERS Safety Report 13182170 (Version 1)
Quarter: 2017Q1

REPORT INFORMATION
  Report Type: Spontaneous
  Country: US (occurrence: US)
  Receive Date: 20170202
  Receipt Date: 20170202
  Transmission Date: 20170428
  Serious: Yes (Hospitalization)
  Sender: FDA-Public Use
  Company Number: US-VIFOR (INTERNATIONAL) INC.-VIT-2017-01058

PATIENT
  Sex: Female

DRUGS (7)
  1. LORAZEPAM. [Concomitant]
     Active Substance: LORAZEPAM
  2. AMLODIPINE [Concomitant]
     Active Substance: AMLODIPINE BESYLATE
  3. LOSARTAN. [Concomitant]
     Active Substance: LOSARTAN
  4. CARVEDILOL. [Concomitant]
     Active Substance: CARVEDILOL
  5. DUREZOL [Concomitant]
     Active Substance: DIFLUPREDNATE
  6. VELTASSA [Suspect]
     Active Substance: PATIROMER
     Indication: HYPERKALAEMIA
     Route: 048
     Dates: start: 20161214
  7. LEVOFLOXACIN. [Concomitant]
     Active Substance: LEVOFLOXACIN

REACTIONS (1)
  - Hospitalisation [Unknown]
